FAERS Safety Report 6254795-5 (Version None)
Quarter: 2009Q3

REPORT INFORMATION
  Report Type: 
  Country: None (occurrence: None)
  Receive Date: 20090702
  Receipt Date: 20090504
  Transmission Date: 20100115
  Serious: Yes (Other)
  Sender: FDA-Public Use
  Company Number: FR-PFIZER INC-2009232743

PATIENT
  Age: 27 Year

DRUGS (12)
  1. ATARAX [Suspect]
     Dosage: 137.5 MG, UNK
     Route: 048
     Dates: start: 20081209, end: 20081211
  2. ATARAX [Suspect]
     Dosage: 87.5 MG, UNK
     Route: 048
     Dates: start: 20081212
  3. INFLUENZA VACCINE [Suspect]
     Dosage: UNK
     Dates: start: 20090112, end: 20090112
  4. TOPALGIC [Suspect]
     Dosage: 350 MG, UNK
     Route: 048
     Dates: start: 20081203, end: 20081207
  5. TOPALGIC [Suspect]
     Dosage: UNK
     Route: 048
     Dates: start: 20081208, end: 20090120
  6. TOPALGIC [Suspect]
     Dosage: 300 MG, UNK
     Route: 048
     Dates: start: 20090204
  7. LAROXYL [Suspect]
     Dosage: 5 MG, 3X/DAY
     Route: 048
     Dates: start: 20081208
  8. ESCITALOPRAM OXALATE [Suspect]
     Dosage: 10 MG, UNK
     Route: 048
     Dates: start: 20081218
  9. LOVENOX [Concomitant]
     Dosage: 4000 IU, 1X/DAY
     Route: 058
     Dates: start: 20081203
  10. ASPEGIC 1000 [Concomitant]
     Dosage: 100 MG, UNK
     Dates: start: 20090108
  11. ORACILLINE [Concomitant]
     Dosage: 2 DF, UNK
     Dates: start: 20081203
  12. ZOLPIDEM TARTRATE [Concomitant]
     Dosage: 0.5 DF, UNK
     Route: 048
     Dates: start: 20090103

REACTIONS (1)
  - EPILEPSY [None]
